FAERS Safety Report 24732187 (Version 3)
Quarter: 2025Q1

REPORT INFORMATION
  Report Type: Spontaneous
  Country: US (occurrence: US)
  Receive Date: 20241213
  Receipt Date: 20250227
  Transmission Date: 20250408
  Serious: Yes (Hospitalization)
  Sender: PFIZER
  Company Number: US-PFIZER INC-PV202400161234

PATIENT
  Age: 74 Year
  Sex: Female
  Weight: 83.28 kg

DRUGS (6)
  1. IBRANCE [Suspect]
     Active Substance: PALBOCICLIB
     Indication: Breast cancer
     Dates: start: 202211
  2. IBRANCE [Suspect]
     Active Substance: PALBOCICLIB
     Dates: start: 20230605
  3. IBRANCE [Suspect]
     Active Substance: PALBOCICLIB
     Dates: start: 20230915
  4. IBRANCE [Suspect]
     Active Substance: PALBOCICLIB
     Route: 048
  5. FEMARA [Concomitant]
     Active Substance: LETROZOLE
  6. XGEVA [Concomitant]
     Active Substance: DENOSUMAB
     Indication: Breast cancer stage IV

REACTIONS (4)
  - Pancytopenia [Unknown]
  - Asthenia [Unknown]
  - Pneumonia [Unknown]
  - Iron deficiency anaemia [Unknown]
